FAERS Safety Report 13247623 (Version 1)
Quarter: 2017Q1

REPORT INFORMATION
  Report Type: Spontaneous
  Country: ES (occurrence: ES)
  Receive Date: 20170217
  Receipt Date: 20170217
  Transmission Date: 20170428
  Serious: Yes (Hospitalization)
  Sender: FDA-Public Use
  Company Number: ES-LANNETT COMPANY, INC.-ES-2017LAN000572

PATIENT
  Age: 51 Year
  Sex: Male

DRUGS (3)
  1. HYDROCHLOROTHIAZIDE (50MG) [Suspect]
     Active Substance: HYDROCHLOROTHIAZIDE
     Indication: HYPERTENSION
     Dosage: UNK
  2. VALSARTAN. [Suspect]
     Active Substance: VALSARTAN
     Indication: HYPERTENSION
     Dosage: UNK
  3. OMEPRAZOLE. [Suspect]
     Active Substance: OMEPRAZOLE
     Indication: PRODUCT USED FOR UNKNOWN INDICATION
     Dosage: UNK

REACTIONS (12)
  - Angiogram cerebral abnormal [Recovered/Resolved]
  - Cyclic vomiting syndrome [Recovered/Resolved]
  - Extraocular muscle paresis [Recovered/Resolved]
  - Right hemisphere deficit syndrome [Recovered/Resolved]
  - Hypertension [Recovered/Resolved]
  - Hypomagnesaemia [Recovered/Resolved]
  - Prerenal failure [Recovered/Resolved]
  - Hallucination, visual [Recovered/Resolved]
  - Nystagmus [Recovered/Resolved]
  - Cerebral vasoconstriction [Recovered/Resolved]
  - Ataxia [Recovered/Resolved]
  - Wernicke^s encephalopathy [Recovered/Resolved]
